FAERS Safety Report 7630066-7 (Version None)
Quarter: 2011Q3

REPORT INFORMATION
  Report Type: 
  Country: None (occurrence: None)
  Receive Date: 20110722
  Receipt Date: 20110709
  Transmission Date: 20111222
  Serious: Yes (Hospitalization, Other)
  Sender: FDA-Public Use
  Company Number: US-BAYER-US-2006-029170

PATIENT
  Age: 40 Year
  Sex: Female

DRUGS (7)
  1. BETASERON [Suspect]
     Dosage: UNK
  2. SEROQUEL [Concomitant]
  3. HYPNOTICS AND SEDATIVES [Concomitant]
     Indication: ANXIETY
  4. BETASERON [Suspect]
     Indication: RELAPSING-REMITTING MULTIPLE SCLEROSIS
     Route: 058
     Dates: start: 20020624, end: 20090717
  5. LORAZEPAM [Concomitant]
  6. DEPAKOTE [Suspect]
     Indication: BIPOLAR DISORDER
     Dosage: UNK, UNK
     Route: 048
     Dates: end: 20060915
  7. BETASERON [Suspect]
     Dosage: 8 MIU, QOD
     Route: 058
     Dates: start: 20090724

REACTIONS (14)
  - CHEST DISCOMFORT [None]
  - FATIGUE [None]
  - VOMITING [None]
  - ANXIETY [None]
  - SUICIDAL IDEATION [None]
  - DEPRESSION [None]
  - OVERDOSE [None]
  - DYSPNOEA [None]
  - INSOMNIA [None]
  - SKIN NEOPLASM EXCISION [None]
  - INCISION SITE INFECTION [None]
  - DIARRHOEA [None]
  - FIBROCYSTIC BREAST DISEASE [None]
  - BREAST CALCIFICATIONS [None]
